FAERS Safety Report 5532176-7 (Version None)
Quarter: 2007Q4

REPORT INFORMATION
  Report Type: 
  Country: None (occurrence: None)
  Receive Date: 20071203
  Receipt Date: 20071123
  Transmission Date: 20080405
  Serious: Yes (Death, Hospitalization)
  Sender: FDA-Public Use
  Company Number: IN-AVENTIS-200720207GDDC

PATIENT
  Age: 45 Year
  Sex: Female
  Weight: 60 kg

DRUGS (5)
  1. ARAVA [Suspect]
     Indication: RHEUMATOID ARTHRITIS
     Route: 048
     Dates: start: 20070902, end: 20071014
  2. ALLEGRA [Concomitant]
     Dosage: DOSE: UNK
  3. ELTROXIN [Concomitant]
     Indication: HYPOTHYROIDISM
     Route: 048
  4. NAPROXEN [Concomitant]
     Indication: RHEUMATOID ARTHRITIS
     Route: 048
     Dates: start: 20070827, end: 20071009
  5. RABEPRAZOLE SODIUM [Concomitant]
     Route: 048
     Dates: start: 20070827, end: 20071004

REACTIONS (6)
  - DIARRHOEA [None]
  - MOUTH ULCERATION [None]
  - NERVOUS SYSTEM DISORDER [None]
  - RASH [None]
  - TOXIC EPIDERMAL NECROLYSIS [None]
  - URINARY TRACT INFECTION [None]
